FAERS Safety Report 8807002 (Version 2)
Quarter: 2015Q2

REPORT INFORMATION
  Report Type: Report from Study
  Country: US (occurrence: US)
  Receive Date: 20120925
  Receipt Date: 20150624
  Transmission Date: 20150821
  Serious: Yes (Death, Other)
  Sender: FDA-Public Use
  Company Number: US-ROCHE-1097023

PATIENT
  Age: 47 Year
  Sex: Female
  Weight: 60 kg

DRUGS (20)
  1. AVASTIN [Suspect]
     Active Substance: BEVACIZUMAB
     Indication: BREAST CANCER
     Dosage: START DATE: 13/JUN/2006, ?DOSE: 5 MG/KG = 300 MG
     Route: 042
  2. ALDACTONE (UNITED STATES) [Concomitant]
     Route: 065
  3. TAGAMET [Concomitant]
     Active Substance: CIMETIDINE
     Route: 065
  4. TAXOTERE [Concomitant]
     Active Substance: DOCETAXEL
  5. ALOXI [Concomitant]
     Active Substance: PALONOSETRON HYDROCHLORIDE
     Route: 065
  6. XELODA [Suspect]
     Active Substance: CAPECITABINE
     Indication: BREAST CANCER
     Route: 065
  7. DOXIL [Concomitant]
     Active Substance: DOXORUBICIN HYDROCHLORIDE
  8. AVASTIN [Suspect]
     Active Substance: BEVACIZUMAB
     Indication: BREAST CANCER FEMALE
  9. DEXAMETHASONE. [Concomitant]
     Active Substance: DEXAMETHASONE
     Route: 065
  10. ARANESP [Concomitant]
     Active Substance: DARBEPOETIN ALFA
     Route: 058
  11. ABRAXANE [Concomitant]
     Active Substance: PACLITAXEL
     Dosage: 3 CYCLES
     Route: 065
  12. CISPLATIN. [Concomitant]
     Active Substance: CISPLATIN
     Route: 065
     Dates: start: 20060105
  13. BENADRYL [Concomitant]
     Active Substance: DIPHENHYDRAMINE HYDROCHLORIDE
     Route: 065
  14. NEUPOGEN [Concomitant]
     Active Substance: FILGRASTIM
     Dosage: DOESE: 480 (UNIT NOT REPORTED)
     Route: 065
  15. LASIX [Concomitant]
     Active Substance: FUROSEMIDE
     Route: 065
  16. TAXOL [Concomitant]
     Active Substance: PACLITAXEL
     Dosage: DOSE: 50 MG/M2 = 83 MG
     Route: 042
  17. ZOMETA [Concomitant]
     Active Substance: ZOLEDRONIC ACID
     Route: 042
  18. NAVELBINE [Concomitant]
     Active Substance: VINORELBINE TARTRATE
     Route: 065
     Dates: start: 20060105
  19. TYLENOL [Concomitant]
     Active Substance: ACETAMINOPHEN
     Route: 065
  20. NEULASTA [Concomitant]
     Active Substance: PEGFILGRASTIM
     Route: 058

REACTIONS (18)
  - Metastases to lymph nodes [Unknown]
  - Fatigue [Unknown]
  - Pericardial effusion [Unknown]
  - Disease progression [Unknown]
  - Hyperbilirubinaemia [Unknown]
  - Death [Fatal]
  - Ascites [Unknown]
  - Constipation [Unknown]
  - Neutropenia [Unknown]
  - Metastases to bone [Unknown]
  - Polyglandular disorder [Unknown]
  - Oedema peripheral [Unknown]
  - Nausea [Unknown]
  - Hepatomegaly [Unknown]
  - Off label use [Unknown]
  - Malaise [Unknown]
  - Metastases to liver [Unknown]
  - Asthenia [Unknown]

NARRATIVE: CASE EVENT DATE: 200411
